FAERS Safety Report 4552313-0 (Version None)
Quarter: 2005Q1

REPORT INFORMATION
  Report Type: 
  Country: None (occurrence: None)
  Receive Date: 20050112
  Receipt Date: 20050112
  Transmission Date: 20050727
  Serious: Yes (Death, Hospitalization)
  Sender: FDA-Public Use
  Company Number: None

PATIENT
  Age: 69 Year
  Sex: Female

DRUGS (1)
  1. VANCOMYCIN [Suspect]
     Dosage: IV
     Route: 042

REACTIONS (4)
  - HYPERSENSITIVITY [None]
  - RENAL IMPAIRMENT [None]
  - RESPIRATORY ARREST [None]
  - SEPSIS [None]
